FAERS Safety Report 9892167 (Version 2)
Quarter: 2014Q1

REPORT INFORMATION
  Report Type: Report from Study
  Country: DE (occurrence: DE)
  Receive Date: 20140212
  Receipt Date: 20140212
  Transmission Date: 20141002
  Serious: Yes (Hospitalization)
  Sender: FDA-Public Use
  Company Number: DE-ABBVIE-11P-062-0720759-00

PATIENT
  Age: 34 Year
  Sex: Female
  Weight: 57 kg

DRUGS (4)
  1. HUMIRA 40 MG/0.8 ML PEN [Suspect]
     Indication: CROHN^S DISEASE
     Route: 058
     Dates: start: 20100414, end: 20100414
  2. HUMIRA 40 MG/0.8 ML PEN [Suspect]
     Dosage: WEEK TWO
     Dates: start: 20100428, end: 20100428
  3. HUMIRA 40 MG/0.8 ML PEN [Suspect]
     Route: 058
     Dates: start: 20131216
  4. LIPOCOL [Concomitant]
     Indication: PRODUCT USED FOR UNKNOWN INDICATION
     Route: 048

REACTIONS (3)
  - Intestinal stenosis [Recovered/Resolved]
  - Ovarian cyst [Recovered/Resolved]
  - Crohn^s disease [Unknown]
